FAERS Safety Report 5412011-8 (Version None)
Quarter: 2007Q3

REPORT INFORMATION
  Report Type: 
  Country: None (occurrence: None)
  Receive Date: 20070813
  Receipt Date: 20070803
  Transmission Date: 20080115
  Serious: Yes (Other)
  Sender: FDA-Public Use
  Company Number: US-JNJFOC-20070801485

PATIENT
  Sex: Female
  Weight: 104.33 kg

DRUGS (8)
  1. FENTANYL TRANSDERMAL SYSTEM [Suspect]
     Route: 062
  2. FENTANYL TRANSDERMAL SYSTEM [Suspect]
     Indication: FIBROMYALGIA
     Route: 062
  3. DIOVAN [Concomitant]
     Indication: HYPERTENSION
     Route: 048
  4. ZOLPIDEM TARTRATE [Concomitant]
     Indication: SLEEP DISORDER
     Dosage: NIGHTLY
     Route: 048
  5. LEXAPRO [Concomitant]
     Indication: DEPRESSION
     Route: 048
  6. ALBUTEROL [Concomitant]
     Indication: ASTHMA
     Dosage: TWO 90UG PUFFS AS NEEDED
     Route: 055
  7. MAGNESIUM SULFATE [Concomitant]
     Route: 048
  8. MORPHINE [Concomitant]
     Indication: BREAKTHROUGH PAIN
     Dosage: AS NEEDED
     Route: 048

REACTIONS (3)
  - PANIC ATTACK [None]
  - SLEEP APNOEA SYNDROME [None]
  - WRONG TECHNIQUE IN DRUG USAGE PROCESS [None]
